FAERS Safety Report 20906866 (Version 5)
Quarter: 2023Q1

REPORT INFORMATION
  Report Type: Spontaneous
  Country: JP (occurrence: JP)
  Receive Date: 20220602
  Receipt Date: 20230129
  Transmission Date: 20230417
  Serious: Yes (Other)
  Sender: FDA-Public Use
  Company Number: JP-NOVARTISPH-NVSJ2022JP091197

PATIENT
  Age: 39 Year
  Sex: Male
  Weight: 96 kg

DRUGS (2)
  1. COSENTYX [Suspect]
     Active Substance: SECUKINUMAB
     Indication: Pustular psoriasis
     Dosage: 300 MG
     Route: 058
     Dates: start: 20160620
  2. PREDNISOLONE [Suspect]
     Active Substance: PREDNISOLONE
     Indication: Product used for unknown indication
     Dosage: UNK
     Route: 048

REACTIONS (1)
  - Osteonecrosis [Not Recovered/Not Resolved]

NARRATIVE: CASE EVENT DATE: 20220422
